FAERS Safety Report 6752065-X (Version None)
Quarter: 2010Q2

REPORT INFORMATION
  Report Type: 
  Country: None (occurrence: None)
  Receive Date: 20100602
  Receipt Date: 20100526
  Transmission Date: 20101027
  Serious: Yes (Death, Other)
  Sender: FDA-Public Use
  Company Number: FR-ELI_LILLY_AND_COMPANY-FR201005007491

PATIENT

DRUGS (1)
  1. GEMCITABINE HYDROCHLORIDE [Suspect]
     Indication: PANCREATIC CARCINOMA
     Dosage: 1000 MG/M2, WEEKLY (1/W)
     Route: 042

REACTIONS (6)
  - ABDOMINAL PAIN [None]
  - ANAEMIA [None]
  - HYPOTENSION [None]
  - RENAL FAILURE ACUTE [None]
  - RESPIRATORY DISTRESS [None]
  - SYNCOPE [None]
